FAERS Safety Report 8991962 (Version 1)
Quarter: 2012Q4

REPORT INFORMATION
  Report Type: 
  Country: US (occurrence: US)
  Receive Date: 20121231
  Receipt Date: 20121231
  Transmission Date: 20130627
  Serious: No
  Sender: FDA-Public Use
  Company Number: US-BAYER-2012-136075

PATIENT
  Age: 75 Year
  Sex: Male
  Weight: 111.11 kg

DRUGS (4)
  1. ALEVE CAPLET/TABLET,MIDOL EXTENDED RELIEF CAPLET [Suspect]
     Indication: BACK ACHE
     Dosage: 2 DF, QD
     Route: 048
     Dates: start: 201212, end: 20121218
  2. ANTIHYPERTENSIVES [Concomitant]
  3. LASIX [Concomitant]
  4. PLAVIX [Concomitant]

REACTIONS (1)
  - Drug ineffective [None]
